FAERS Safety Report 7418083-3 (Version None)
Quarter: 2011Q2

REPORT INFORMATION
  Report Type: 
  Country: None (occurrence: None)
  Receive Date: 20110415
  Receipt Date: 20110318
  Transmission Date: 20111010
  Serious: No
  Sender: FDA-Public Use
  Company Number: US-B.I. PHARMACEUTICALS,INC./RIDGEFIELD-2011-BP-08691BP

PATIENT
  Age: 64 Year
  Sex: Male

DRUGS (7)
  1. METFORMIN HCL [Concomitant]
     Indication: DIABETES MELLITUS
  2. METOPROLOL [Concomitant]
     Indication: DIABETES MELLITUS
  3. JANUVIA [Concomitant]
     Indication: DIABETES MELLITUS
  4. COSTAR [Concomitant]
     Indication: BLOOD CHOLESTEROL INCREASED
  5. GLYBURIDE [Concomitant]
     Indication: DIABETES MELLITUS
  6. PRADAXA [Suspect]
     Indication: ATRIAL FIBRILLATION
     Dosage: 300 MG
     Route: 048
     Dates: start: 20101208
  7. DIGOXIN [Suspect]
     Indication: ATRIAL FIBRILLATION

REACTIONS (1)
  - BLOOD GLUCOSE INCREASED [None]
